FAERS Safety Report 15458337 (Version 1)
Quarter: 2018Q3

REPORT INFORMATION
  Report Type: Spontaneous
  Country: PY (occurrence: PY)
  Receive Date: 20180929
  Receipt Date: 20180929
  Transmission Date: 20181020
  Serious: Yes (Disabling)
  Sender: FDA-Public Use
  Company Number: None

PATIENT
  Age: 26 Year
  Sex: Female
  Weight: 63 kg

DRUGS (4)
  1. JUSTUM 1G CEFADROXILO 1G M?DICA IF DIVISI?N DE INDUFAR CISA [Suspect]
     Active Substance: CEFADROXIL
     Indication: INFECTED CYST
     Dosage: ?          QUANTITY:1 COMPRIMIDO DE 1G;?
     Route: 048
  2. ANTICONCEPTIVO DAMSEL [Concomitant]
  3. DAMCEL Y JUSTUM [Concomitant]
  4. JUSTUM 1G CEFADROXILO 1G M?DICA IF DIVISI?N DE INDUFAR CISA [Suspect]
     Active Substance: CEFADROXIL
     Indication: BARTHOLIN^S CYST
     Dosage: ?          QUANTITY:1 COMPRIMIDO DE 1G;?
     Route: 048

REACTIONS (4)
  - Vomiting [None]
  - Pyrexia [None]
  - Throat irritation [None]
  - Abdominal pain upper [None]

NARRATIVE: CASE EVENT DATE: 20180929
